FAERS Safety Report 8722266 (Version 2)
Quarter: 2013Q4

REPORT INFORMATION
  Report Type: Spontaneous
  Country: CA (occurrence: CA)
  Receive Date: 20120913
  Receipt Date: 20131108
  Transmission Date: 20140711
  Serious: Yes (Hospitalization)
  Sender: FDA-Public Use
  Company Number: CA-009507513-1207CAN009440

PATIENT
  Age: 66 Year
  Sex: Male
  Weight: 79 kg

DRUGS (2)
  1. PEGETRON [Suspect]
     Dosage: 120 MICROGRAM, QW
     Route: 058
     Dates: start: 20120509, end: 20120725
  2. VICTRELIS [Suspect]
     Indication: PRODUCT USED FOR UNKNOWN INDICATION
     Dosage: 800 MICROGRAM, TID
     Dates: start: 20120609, end: 20120725

REACTIONS (4)
  - Neutropenia [Recovered/Resolved]
  - Pyrexia [Recovered/Resolved]
  - Bacterial sepsis [Recovered/Resolved]
  - Oropharyngeal pain [Unknown]
